FAERS Safety Report 22619117 (Version 1)
Quarter: 2023Q2

REPORT INFORMATION
  Report Type: Report from Study
  Country: ES (occurrence: ES)
  Receive Date: 20230620
  Receipt Date: 20230620
  Transmission Date: 20230722
  Serious: Yes (Death, Other)
  Sender: FDA-Public Use
  Company Number: ES-TAKEDA-2023TUS059803

PATIENT
  Age: 74 Year
  Sex: Female

DRUGS (14)
  1. ICATIBANT [Suspect]
     Active Substance: ICATIBANT ACETATE
     Indication: Hereditary angioedema
     Dosage: UNK MILLIGRAM
     Route: 065
     Dates: start: 20100622
  2. ICATIBANT [Suspect]
     Active Substance: ICATIBANT ACETATE
     Indication: Hereditary angioedema
     Dosage: UNK MILLIGRAM
     Route: 065
     Dates: start: 20100622
  3. ICATIBANT [Suspect]
     Active Substance: ICATIBANT ACETATE
     Dosage: 30 MILLIGRAM
     Route: 050
     Dates: start: 20221023
  4. ICATIBANT [Suspect]
     Active Substance: ICATIBANT ACETATE
     Dosage: 30 MILLIGRAM
     Route: 050
     Dates: start: 20221023
  5. ATENOLOL [Concomitant]
     Active Substance: ATENOLOL
     Indication: Hypertension
     Dosage: 50 MILLIGRAM, QD
     Route: 048
     Dates: start: 201309
  6. TERBUTALINE SULFATE [Concomitant]
     Active Substance: TERBUTALINE SULFATE
     Dosage: 500 MICROGRAM, Q12H
     Route: 055
     Dates: start: 20160317
  7. OMEPRAZOLE [Concomitant]
     Active Substance: OMEPRAZOLE
     Dosage: 20 MILLIGRAM, QD
     Route: 048
     Dates: start: 20110125
  8. AZITHROMYCIN [Concomitant]
     Active Substance: AZITHROMYCIN
     Indication: Influenza
     Dosage: 500 MILLIGRAM, TID
     Route: 048
     Dates: start: 20160314, end: 20160316
  9. Biomag [Concomitant]
     Indication: Product used for unknown indication
     Dosage: 1 DOSAGE FORM
     Route: 048
     Dates: start: 20170216
  10. AMOXICILLIN [Concomitant]
     Active Substance: AMOXICILLIN
     Indication: Upper airway obstruction
     Dosage: 750 MILLIGRAM, TID
     Route: 048
     Dates: start: 20170927, end: 20171010
  11. AMOXICILLIN [Concomitant]
     Active Substance: AMOXICILLIN
     Indication: Sialoadenitis
     Dosage: 875 MILLIGRAM, TID
     Route: 048
     Dates: start: 20220921, end: 20220928
  12. AMOXICILLIN [Concomitant]
     Active Substance: AMOXICILLIN
     Dosage: 875 MILLIGRAM, TID
     Route: 048
     Dates: start: 202211, end: 202211
  13. ACETAMINOPHEN [Concomitant]
     Active Substance: ACETAMINOPHEN
     Indication: COVID-19
     Dosage: UNK
     Route: 048
     Dates: start: 202204, end: 202204
  14. PREDNISONE [Concomitant]
     Active Substance: PREDNISONE
     Indication: Polymyalgia rheumatica
     Dosage: 20 MILLIGRAM, QD
     Route: 048
     Dates: start: 20221118

REACTIONS (1)
  - Death [Fatal]
